FAERS Safety Report 23041972 (Version 1)
Quarter: 2023Q4

REPORT INFORMATION
  Report Type: Spontaneous
  Country: CN (occurrence: CN)
  Receive Date: 20231007
  Receipt Date: 20231007
  Transmission Date: 20240110
  Serious: Yes (Hospitalization, Other)
  Sender: FDA-Public Use
  Company Number: CN-TAKEDA-2023TUS095435

PATIENT
  Age: 59 Year
  Sex: Male

DRUGS (3)
  1. NINLARO [Suspect]
     Active Substance: IXAZOMIB CITRATE
     Indication: Plasma cell myeloma
     Dosage: 4 MILLIGRAM
     Route: 048
     Dates: start: 20220304
  2. DEXAMETHASONE [Suspect]
     Active Substance: DEXAMETHASONE
     Dosage: UNK
     Route: 065
     Dates: start: 20220304
  3. REVLIMID [Suspect]
     Active Substance: LENALIDOMIDE
     Indication: Plasma cell myeloma
     Dosage: UNK
     Route: 065
     Dates: start: 20220304

REACTIONS (5)
  - Myelosuppression [Recovered/Resolved]
  - Coronavirus pneumonia [Recovered/Resolved]
  - Transient lingual papillitis [Recovered/Resolved]
  - Cholelithiasis [Recovered/Resolved]
  - Paronychia [Recovered/Resolved]

NARRATIVE: CASE EVENT DATE: 20221104
